FAERS Safety Report 8729733 (Version 2)
Quarter: 2015Q2

REPORT INFORMATION
  Report Type: Report from Study
  Country: US (occurrence: US)
  Receive Date: 20120817
  Receipt Date: 20150623
  Transmission Date: 20150821
  Serious: Yes (Other)
  Sender: FDA-Public Use
  Company Number: US-ROCHE-1100508

PATIENT
  Sex: Male

DRUGS (4)
  1. ACTIVASE [Suspect]
     Active Substance: ALTEPLASE
     Indication: ACUTE MYOCARDIAL INFARCTION
     Route: 065
  2. LIDOCAINE. [Concomitant]
     Active Substance: LIDOCAINE
     Route: 065
  3. ATROPINE [Concomitant]
     Active Substance: ATROPINE
     Route: 042
  4. TRIDIL [Concomitant]
     Active Substance: NITROGLYCERIN

REACTIONS (2)
  - Chest pain [Unknown]
  - Nausea [Unknown]
